FAERS Safety Report 11983700 (Version 2)
Quarter: 2016Q1

REPORT INFORMATION
  Report Type: Report from Study
  Country: US (occurrence: US)
  Receive Date: 20160201
  Receipt Date: 20160331
  Transmission Date: 20160526
  Serious: Yes (Other)
  Sender: FDA-Public Use
  Company Number: US-JNJFOC-20151101630

PATIENT
  Sex: Female

DRUGS (1)
  1. IMBRUVICA [Suspect]
     Active Substance: IBRUTINIB
     Indication: CHRONIC LYMPHOCYTIC LEUKAEMIA
     Dosage: EXP DATE: 30-APR-2017
     Route: 048
     Dates: start: 201509

REACTIONS (8)
  - Lumbar vertebral fracture [Unknown]
  - Incorrect dose administered [Unknown]
  - Nerve compression [Unknown]
  - Eructation [Unknown]
  - Accident [Unknown]
  - Nausea [Unknown]
  - Contusion [Unknown]
  - Fall [Unknown]

NARRATIVE: CASE EVENT DATE: 2015
